FAERS Safety Report 6992333-X (Version None)
Quarter: 2010Q3

REPORT INFORMATION
  Report Type: 
  Country: None (occurrence: None)
  Receive Date: 20100917
  Receipt Date: 20100914
  Transmission Date: 20110219
  Serious: Yes (Life-Threatening)
  Sender: FDA-Public Use
  Company Number: FR-ASTRAZENECA-2010SE18007

PATIENT
  Age: 24677 Day
  Sex: Female
  Weight: 70 kg

DRUGS (8)
  1. DIPRIVAN [Suspect]
     Indication: INDUCTION OF ANAESTHESIA
     Route: 042
     Dates: start: 20090917, end: 20090917
  2. TRACRIUM [Suspect]
     Route: 042
     Dates: start: 20090917, end: 20090917
  3. ULTIVA [Suspect]
     Indication: INDUCTION OF ANAESTHESIA
     Route: 042
     Dates: start: 20090917, end: 20090917
  4. AUGMENTIN '125' [Concomitant]
     Indication: ANTIBIOTIC PROPHYLAXIS
     Dosage: 3 G ONCE (2 G THEN 1 G)
     Route: 042
     Dates: start: 20090917, end: 20090917
  5. DILTIAZEM [Concomitant]
  6. TAREG [Concomitant]
  7. EZETIMIBE/SIMVASTATIN [Concomitant]
  8. ALFUZOSIN HCL [Concomitant]

REACTIONS (1)
  - CIRCULATORY COLLAPSE [None]
